FAERS Safety Report 6471039-X (Version None)
Quarter: 2009Q4

REPORT INFORMATION
  Report Type: 
  Country: None (occurrence: None)
  Receive Date: 20091203
  Receipt Date: 20091118
  Transmission Date: 20100525
  Serious: Yes (Other)
  Sender: FDA-Public Use
  Company Number: FR-GENENTECH-294804

PATIENT
  Sex: Male

DRUGS (4)
  1. AVASTIN [Suspect]
     Indication: COLON CANCER
     Dosage: UNK
     Route: 065
     Dates: start: 20070501
  2. FLUOROURACIL [Concomitant]
     Indication: COLON CANCER
     Dosage: UNK
     Dates: start: 20070501
  3. FOLINIC ACID [Concomitant]
     Indication: COLON CANCER
     Dosage: UNK
     Dates: start: 20070501
  4. IRINOTECAN HCL [Concomitant]
     Indication: COLON CANCER
     Dosage: UNK
     Dates: start: 20070501

REACTIONS (1)
  - OSTEONECROSIS [None]
